FAERS Safety Report 5232074-2 (Version None)
Quarter: 2007Q1

REPORT INFORMATION
  Report Type: 
  Country: None (occurrence: None)
  Receive Date: 20061201
  Receipt Date: 20060828
  Transmission Date: 20070707
  Serious: No
  Sender: FDA-Public Use
  Company Number: US200608006634

PATIENT
  Age: 35 Year
  Sex: Female

DRUGS (3)
  1. CYMBALTA [Suspect]
     Dosage: 60 MG
     Dates: start: 20060315, end: 20060818
  2. XANAX /USA/ (ALPRAZOLAM) [Concomitant]
  3. VICODIN [Concomitant]

REACTIONS (1)
  - TARDIVE DYSKINESIA [None]
